FAERS Safety Report 5954061-9 (Version None)
Quarter: 2008Q4

REPORT INFORMATION
  Report Type: 
  Country: None (occurrence: None)
  Receive Date: 20081114
  Receipt Date: 20081103
  Transmission Date: 20090506
  Serious: Yes (Congenital Anomaly)
  Sender: FDA-Public Use
  Company Number: HU-PFIZER INC-2008095141

PATIENT
  Sex: Male

DRUGS (1)
  1. ALPRAZOLAM [Suspect]
     Dosage: DAILY DOSE:15MG

REACTIONS (2)
  - DRUG EXPOSURE DURING PREGNANCY [None]
  - TONGUE DISORDER [None]
